FAERS Safety Report 7511823-4 (Version None)
Quarter: 2011Q2

REPORT INFORMATION
  Report Type: 
  Country: None (occurrence: None)
  Receive Date: 20110531
  Receipt Date: 20110524
  Transmission Date: 20111010
  Serious: Yes (Other)
  Sender: FDA-Public Use
  Company Number: US-PFIZER INC-2011113024

PATIENT
  Sex: Female
  Weight: 23.129 kg

DRUGS (8)
  1. FLONASE [Concomitant]
     Dosage: 0.05 %, UNK
  2. FLOVENT [Concomitant]
     Dosage: 44 UG, UNK
  3. GENOTROPIN [Suspect]
     Dosage: 1.2 MG, 6 DAYS A WEEK
     Route: 058
  4. MULTI-VITAMINS [Concomitant]
     Dosage: UNK
  5. ZYRTEC [Concomitant]
     Dosage: 5 MG, UNK
  6. VENTOLIN [Concomitant]
     Dosage: UNK
  7. MONTELUKAST SODIUM [Concomitant]
     Dosage: 5 MG, UNK
  8. ADVAIR DISKUS 100/50 [Concomitant]
     Dosage: UNK

REACTIONS (2)
  - SINUSITIS [None]
  - HEADACHE [None]
